FAERS Safety Report 17562567 (Version 17)
Quarter: 2025Q2

REPORT INFORMATION
  Report Type: Report from Study
  Country: CO (occurrence: CO)
  Receive Date: 20200319
  Receipt Date: 20250611
  Transmission Date: 20250716
  Serious: Yes (Hospitalization, Other)
  Sender: TAKEDA
  Company Number: CO-SHIRE-CO202008892

PATIENT
  Age: 12 Year
  Sex: Female
  Weight: 39 kg

DRUGS (1)
  1. HUMAN IMMUNOGLOBULIN G\HYALURONIDASE RECOMBINANT HUMAN [Suspect]
     Active Substance: HUMAN IMMUNOGLOBULIN G\HYALURONIDASE (HUMAN RECOMBINANT)
     Indication: Primary immunodeficiency syndrome
     Dosage: 30 GRAM, MONTHLY
     Dates: start: 20200304

REACTIONS (23)
  - Syncope [Recovering/Resolving]
  - Malaise [Recovered/Resolved]
  - Head injury [Recovering/Resolving]
  - Pharyngeal haemorrhage [Unknown]
  - COVID-19 [Recovering/Resolving]
  - Pain [Unknown]
  - Rhinorrhoea [Unknown]
  - Cough [Unknown]
  - Pyrexia [Recovering/Resolving]
  - Dysuria [Unknown]
  - Urinary tract infection [Unknown]
  - Oxygen saturation decreased [Recovering/Resolving]
  - Dizziness [Recovered/Resolved]
  - Hyperhidrosis [Recovered/Resolved]
  - Epistaxis [Unknown]
  - Fall [Recovering/Resolving]
  - Heavy menstrual bleeding [Unknown]
  - Product availability issue [Unknown]
  - Inappropriate schedule of product administration [Unknown]
  - Product use issue [Unknown]
  - Treatment noncompliance [Unknown]
  - Infusion site pain [Recovering/Resolving]
  - Headache [Recovering/Resolving]

NARRATIVE: CASE EVENT DATE: 20200304
